FAERS Safety Report 12886674 (Version 1)
Quarter: 2016Q4

REPORT INFORMATION
  Report Type: Spontaneous
  Country: BR (occurrence: BR)
  Receive Date: 20161026
  Receipt Date: 20161026
  Transmission Date: 20170207
  Serious: Yes (Hospitalization, Other)
  Sender: FDA-Public Use
  Company Number: BR-009507513-1610BRA013689

PATIENT
  Age: 36 Year
  Sex: Female
  Weight: 68 kg

DRUGS (1)
  1. NUVARING [Suspect]
     Active Substance: ETHINYL ESTRADIOL\ETONOGESTREL
     Indication: CONTRACEPTION
     Dosage: 3 WEEKS OF USE AND 1 WEEK OF PAUSE
     Route: 067
     Dates: start: 2006

REACTIONS (8)
  - Seroma [Recovered/Resolved]
  - Incorrect drug administration duration [Unknown]
  - Excessive skin [Recovered/Resolved]
  - Abdominoplasty [Recovered/Resolved]
  - Seroma [Recovered/Resolved]
  - Metabolic surgery [Recovered/Resolved]
  - Drug hypersensitivity [Recovered/Resolved]
  - Withdrawal bleed [Unknown]

NARRATIVE: CASE EVENT DATE: 20110727
